FAERS Safety Report 20539551 (Version 1)
Quarter: 2022Q1

REPORT INFORMATION
  Report Type: Spontaneous
  Country: US (occurrence: US)
  Receive Date: 20220302
  Receipt Date: 20220302
  Transmission Date: 20220424
  Serious: Yes (Death, Hospitalization)
  Sender: FDA-Public Use
  Company Number: US-JNJFOC-20211053625

PATIENT
  Age: 8 Decade
  Sex: Male

DRUGS (4)
  1. ZYTIGA [Suspect]
     Active Substance: ABIRATERONE ACETATE
     Indication: Prostate cancer
     Dosage: 2 TABLETS DAILY AT 12:00 PM
     Route: 048
     Dates: start: 201906, end: 20210831
  2. PREDNISONE [Concomitant]
     Active Substance: PREDNISONE
     Dates: start: 201906
  3. CALCIUM [Concomitant]
     Active Substance: CALCIUM
  4. ERGOCALCIFEROL [Concomitant]
     Active Substance: ERGOCALCIFEROL

REACTIONS (2)
  - Death [Fatal]
  - Colon cancer [Not Recovered/Not Resolved]
